FAERS Safety Report 5240416-7 (Version None)
Quarter: 2007Q1

REPORT INFORMATION
  Report Type: 
  Country: None (occurrence: None)
  Receive Date: 20061208
  Receipt Date: 20060323
  Transmission Date: 20070707
  Serious: Yes (Other)
  Sender: FDA-Public Use
  Company Number: 2006UW05109

PATIENT
  Age: 81 Year
  Sex: Male
  Weight: 68.946 kg

DRUGS (5)
  1. CRESTOR [Suspect]
     Indication: LOW DENSITY LIPOPROTEIN INCREASED
     Dosage: 10 MG PO
     Route: 048
     Dates: start: 20060101
  2. COZAAR [Concomitant]
  3. PROCARDIA XL [Concomitant]
  4. ATENOLOL [Concomitant]
  5. ASACOL [Concomitant]

REACTIONS (2)
  - INSOMNIA [None]
  - TINNITUS [None]
